FAERS Safety Report 25864252 (Version 1)
Quarter: 2025Q3

REPORT INFORMATION
  Report Type: Spontaneous
  Country: US (occurrence: None)
  Receive Date: 20250929
  Receipt Date: 20250929
  Transmission Date: 20251020
  Serious: Yes (Other)
  Sender: FDA-CTU
  Company Number: None

PATIENT
  Age: 64 Year
  Sex: Female

DRUGS (2)
  1. EPCLUSA [Suspect]
     Active Substance: SOFOSBUVIR\VELPATASVIR
     Indication: Hepatitis C
     Dosage: 400-100MG (FOR EPCLUSA) AND 600MG EVERY MORN? ?
  2. RIBAVIRIN [Suspect]
     Active Substance: RIBAVIRIN

REACTIONS (1)
  - Haemoglobin decreased [None]
